FAERS Safety Report 9370216 (Version 2)
Quarter: 2013Q3

REPORT INFORMATION
  Report Type: Spontaneous
  Country: IE (occurrence: IE)
  Receive Date: 20130626
  Receipt Date: 20130718
  Transmission Date: 20140515
  Serious: Yes (Death)
  Sender: FDA-Public Use
  Company Number: IE-AMGEN-IRLSP2013044738

PATIENT
  Age: 69 Year
  Sex: Female

DRUGS (14)
  1. PROLIA [Suspect]
     Indication: OSTEOPOROSIS
     Dosage: 60 MG, Q6MO
     Route: 058
     Dates: start: 20121219
  2. XANAX [Concomitant]
     Dosage: 0.25 MG, QD
     Dates: start: 20080328
  3. CALCICHEW D3 FORTE [Concomitant]
     Dosage: 500 MG/ 400 IU, 1 TAB QD
     Dates: start: 20120523
  4. PHYLLOCONTIN CONTINUS [Concomitant]
     Dosage: 225 MG, BID
     Dates: start: 20100702
  5. GLUCOPHAGE [Concomitant]
     Dosage: 500 MG, BID
     Dates: start: 20100922
  6. CAPRIN [Concomitant]
     Dosage: 75 MG, 1 TAB QD
     Dates: start: 20091021
  7. SERETIDE DISCUS [Concomitant]
     Dosage: 500 MUG, 2 PUFFS BID
     Route: 045
     Dates: start: 20110531
  8. MICARDIS [Concomitant]
     Dosage: 40 MG, QD
     Dates: start: 20110303
  9. SPIRIVA [Concomitant]
     Dosage: 18 MUG, 2 PUFFS QD
     Route: 045
     Dates: start: 20110531
  10. SALMOL [Concomitant]
     Dosage: 100 MUG, 2 PUFFS QD
     Route: 045
     Dates: start: 20120320
  11. STERI-NEB SALINE [Concomitant]
     Dosage: O.9% 2.5 ML, QD
     Dates: start: 20120320
  12. MOVICOL                            /01625101/ [Concomitant]
     Dosage: 13.8 G, QD
     Dates: start: 20121018
  13. SERC                               /00034201/ [Concomitant]
     Dosage: 16 MG, QD
     Dates: start: 20130109
  14. TAVANIC [Concomitant]
     Dosage: 250 MG, UNK

REACTIONS (1)
  - Bronchial carcinoma [Fatal]
